FAERS Safety Report 18213163 (Version 1)
Quarter: 2020Q3

REPORT INFORMATION
  Report Type: Spontaneous
  Country: US (occurrence: US)
  Receive Date: 20200830
  Receipt Date: 20200830
  Transmission Date: 20201103
  Serious: Yes (Other)
  Sender: FDA-Public Use
  Company Number: None

PATIENT
  Age: 17 Year
  Sex: Female
  Weight: 81 kg

DRUGS (2)
  1. SLYND [Suspect]
     Active Substance: DROSPIRENONE
     Indication: MENORRHAGIA
     Dosage: ?          QUANTITY:1 TABLET(S);?
     Route: 048
     Dates: start: 20200823, end: 20200830
  2. SLYND [Suspect]
     Active Substance: DROSPIRENONE
     Indication: DYSMENORRHOEA
     Dosage: ?          QUANTITY:1 TABLET(S);?
     Route: 048
     Dates: start: 20200823, end: 20200830

REACTIONS (13)
  - Dysmenorrhoea [None]
  - Gait inability [None]
  - Headache [None]
  - Fall [None]
  - Drug ineffective [None]
  - Retching [None]
  - Nausea [None]
  - Menstruation delayed [None]
  - Burning sensation [None]
  - Adnexa uteri pain [None]
  - Uterine pain [None]
  - Crying [None]
  - Vomiting [None]

NARRATIVE: CASE EVENT DATE: 20200828
